FAERS Safety Report 5297891-1 (Version None)
Quarter: 2007Q2

REPORT INFORMATION
  Report Type: 
  Country: None (occurrence: None)
  Receive Date: 20070416
  Receipt Date: 20070402
  Transmission Date: 20071010
  Serious: Yes (Other)
  Sender: FDA-Public Use
  Company Number: US-ELI_LILLY_AND_COMPANY-US200704000167

PATIENT
  Sex: Female

DRUGS (2)
  1. EVISTA [Suspect]
     Indication: OSTEOPOROSIS
     Dates: end: 20070220
  2. FORTEO [Suspect]
     Indication: OSTEOPOROSIS
     Dates: start: 20070220

REACTIONS (5)
  - BREAST CANCER [None]
  - DIARRHOEA [None]
  - NAUSEA [None]
  - NON-HODGKIN'S LYMPHOMA [None]
  - VOMITING [None]
